FAERS Safety Report 9511964 (Version 1)
Quarter: 2013Q1

REPORT INFORMATION
  Report Type: Spontaneous
  Country: US (occurrence: None)
  Receive Date: 20130305
  Receipt Date: 20130305
  Transmission Date: 20140127
  Serious: Yes (Hospitalization)
  Sender: FDA-Public Use
  Company Number: 163-21880-11111755

PATIENT
  Age: 63 Year
  Sex: Female

DRUGS (7)
  1. REVLIMID [Suspect]
     Indication: MYELODYSPLASTIC SYNDROME
     Route: 048
     Dates: start: 20110912, end: 20111104
  2. FOLIC ACID (FOLIC ACID) (UNKNOWN) [Concomitant]
  3. ARANESP (DARBEPOETIN ALFA) (UNKNOWN) [Concomitant]
  4. ASPIRIN (ACETYLSALICYLIC ACID) (UNKNOWN) (ACETYLSALICYLIC ACID) [Concomitant]
  5. COD LIVER OIL (COD LIVER OIL) (UNKNOWN) [Concomitant]
  6. VITAMIN D (ERGOCALCIFEROL) [Concomitant]
  7. INDUCTION CHEMOTHERAPY (CHEMOTHERAPEUTICS ) (UNKNOWN ) [Concomitant]

REACTIONS (2)
  - Acute myeloid leukaemia [None]
  - Myelodysplastic syndrome transformation [None]
